FAERS Safety Report 4563734-4 (Version None)
Quarter: 2005Q1

REPORT INFORMATION
  Report Type: 
  Country: None (occurrence: None)
  Receive Date: 20050128
  Receipt Date: 20050126
  Transmission Date: 20050727
  Serious: Yes (Other)
  Sender: FDA-Public Use
  Company Number: PHNU2005DE00687

PATIENT
  Age: 27 Year
  Sex: Male

DRUGS (7)
  1. TRILEPTAL [Suspect]
     Dosage: 300 MG, BID
     Route: 048
  2. APONAL [Concomitant]
     Indication: DRUG WITHDRAWAL SYNDROME
     Dosage: 50 MG/D
     Route: 048
     Dates: start: 20040923, end: 20040924
  3. DOMINAL [Concomitant]
     Indication: DRUG WITHDRAWAL SYNDROME
     Dosage: 40 MG/D
     Route: 048
  4. L-POLAMIDON [Concomitant]
     Route: 048
     Dates: start: 20040922
  5. L-POLAMIDON [Concomitant]
     Dosage: DECREASING DOSAGE
  6. DIAZEPAM [Concomitant]
     Dates: start: 20040922
  7. DIAZEPAM [Concomitant]
     Dosage: DECREASING DOSAGE

REACTIONS (1)
  - BLOOD CREATINE PHOSPHOKINASE INCREASED [None]
